FAERS Safety Report 25201603 (Version 5)
Quarter: 2025Q3

REPORT INFORMATION
  Report Type: Report from Study
  Country: US (occurrence: US)
  Receive Date: 20250416
  Receipt Date: 20250904
  Transmission Date: 20251021
  Serious: No
  Sender: SUNOVION
  Company Number: US-SUMITOMO PHARMA SWITZERLAND GMBH-2025SPA003510

PATIENT
  Age: 75 Year
  Sex: Male

DRUGS (29)
  1. ORGOVYX [Suspect]
     Active Substance: RELUGOLIX
     Indication: Prostate cancer
     Dosage: 120 MG, QD
     Route: 048
     Dates: start: 202501
  2. ALBUTEROL SULFATE [Concomitant]
     Active Substance: ALBUTEROL SULFATE
  3. AMLODIPINE BESYLATE [Concomitant]
     Active Substance: AMLODIPINE BESYLATE
  4. ASPIRIN [Concomitant]
     Active Substance: ASPIRIN
  5. ATORVASTATIN CALCIUM [Concomitant]
     Active Substance: ATORVASTATIN CALCIUM
  6. BENAZEPRIL HYDROCHLORIDE [Concomitant]
     Active Substance: BENAZEPRIL HYDROCHLORIDE
  7. VITAMIN C [Concomitant]
     Active Substance: ASCORBIC ACID
  8. FLUOCINOLONE ACETONIDE [Concomitant]
     Active Substance: FLUOCINOLONE ACETONIDE
  9. HYDROCHLOROTHIAZIDE [Concomitant]
     Active Substance: HYDROCHLOROTHIAZIDE
  10. JARDIANCE [Concomitant]
     Active Substance: EMPAGLIFLOZIN
  11. LATANOPROST [Concomitant]
     Active Substance: LATANOPROST
  12. VITAMINS [Concomitant]
     Active Substance: VITAMINS
  13. METAMUCIL [Concomitant]
     Active Substance: PLANTAGO SEED
  14. PROBIOTICS NOS [Concomitant]
     Active Substance: PROBIOTICS NOS
  15. METFORMIN HYDROCHLORIDE [Concomitant]
     Active Substance: METFORMIN HYDROCHLORIDE
  16. METOPROLOL SUCCINATE [Concomitant]
     Active Substance: METOPROLOL SUCCINATE
  17. Turmeric complex [Concomitant]
  18. SOLIQUA 100/33 [Concomitant]
     Active Substance: INSULIN GLARGINE\LIXISENATIDE
     Route: 058
  19. VITAMIN B12 [Concomitant]
     Active Substance: CYANOCOBALAMIN
  20. ASIAN GINSENG [Concomitant]
     Active Substance: ASIAN GINSENG
  21. BERBERINE [Concomitant]
     Active Substance: BERBERINE
  22. COENZYME Q10 [Concomitant]
     Active Substance: DIETARY SUPPLEMENT\UBIDECARENONE
  23. FLUOCINONIDE [Concomitant]
     Active Substance: FLUOCINONIDE
  24. METAMUCIL [Concomitant]
     Active Substance: PLANTAGO SEED
  25. MAGNESIUM [Concomitant]
     Active Substance: MAGNESIUM
  26. CALCIUM [Concomitant]
     Active Substance: CALCIUM
  27. Slow magnesium chloride with calcium [Concomitant]
  28. ALPHA LIPOIC ACID [Concomitant]
     Active Substance: .ALPHA.-LIPOIC ACID
  29. CEFPODOXIME [Concomitant]
     Active Substance: CEFPODOXIME

REACTIONS (8)
  - Contusion [Unknown]
  - Rash macular [Unknown]
  - Blood glucose increased [Unknown]
  - Diarrhoea [Unknown]
  - Asthenia [Not Recovered/Not Resolved]
  - Fatigue [Not Recovered/Not Resolved]
  - Hot flush [Unknown]
  - Incorrect dose administered [Recovered/Resolved]
